FAERS Safety Report 9632207 (Version 1)
Quarter: 2013Q4

REPORT INFORMATION
  Report Type: Spontaneous
  Country: FR (occurrence: None)
  Receive Date: 20131016
  Receipt Date: 20131016
  Transmission Date: 20140711
  Serious: Yes (Other)
  Sender: FDA-Public Use
  Company Number: DSM-2013-00933

PATIENT
  Age: 79 Year
  Sex: Female

DRUGS (9)
  1. OLMETEC [Suspect]
     Indication: HYPERTENSION
     Dosage: (40 MG , 1 IN 1 D)
     Route: 048
     Dates: end: 20130623
  2. METFORMIN (METFORMIN) (1000 MILLIGRAM) (METFORMIN) [Concomitant]
  3. RILMENIDINE (RILMENIDINE) (1 MILLIGRAM) (RILMENIDINE) [Concomitant]
  4. ATORVASTATIN (ATORVASTATIN) (ATORVASTATIN) [Concomitant]
  5. JANUVIA (STAGLIPTIN PHOSPHATE) (100 MILLIGRAM) (STAGLIPTIN PHOSPHATE) [Concomitant]
  6. GLIMEPIRIDE (GLIIMEPIRIDE) (GLIMEPIRIDE) [Concomitant]
  7. CELIPROLOL (CELIPROLOL) (CELIPROLOL) [Concomitant]
  8. FLECAINE (FLECAINE ACETATE) (100 MILLIGRAM) (FLECAINE ACTETATE) [Concomitant]
  9. ATARAX (HYDROXYZINE) (HYDROXYZINE) [Concomitant]

REACTIONS (3)
  - Renal failure acute [None]
  - Hyperkalaemia [None]
  - Condition aggravated [None]
